FAERS Safety Report 20583687 (Version 6)
Quarter: 2022Q2

REPORT INFORMATION
  Report Type: Spontaneous
  Country: US (occurrence: US)
  Receive Date: 20220311
  Receipt Date: 20220428
  Transmission Date: 20220721
  Serious: No
  Sender: FDA-Public Use
  Company Number: US-SA-SAC20220307001637

PATIENT
  Age: 81 Year
  Sex: Male

DRUGS (3)
  1. DUPIXENT [Suspect]
     Active Substance: DUPILUMAB
     Indication: Dermatitis atopic
     Dosage: 600 MG, 1X
     Route: 058
     Dates: start: 20220215, end: 20220215
  2. DUPIXENT [Suspect]
     Active Substance: DUPILUMAB
     Indication: Dyshidrotic eczema
     Dosage: 300 MG, QOW
     Route: 058
  3. DUPIXENT [Suspect]
     Active Substance: DUPILUMAB
     Indication: Dyshidrotic eczema

REACTIONS (7)
  - Headache [Unknown]
  - Skin discolouration [Not Recovered/Not Resolved]
  - Pruritus [Unknown]
  - Skin exfoliation [Unknown]
  - Arthralgia [Not Recovered/Not Resolved]
  - Product use in unapproved indication [Unknown]
  - Eczema [Unknown]

NARRATIVE: CASE EVENT DATE: 20220101
